FAERS Safety Report 20769153 (Version 1)
Quarter: 2022Q2

REPORT INFORMATION
  Report Type: Spontaneous
  Country: US (occurrence: US)
  Receive Date: 20220429
  Receipt Date: 20220429
  Transmission Date: 20220721
  Serious: Yes (Hospitalization)
  Sender: FDA-Public Use
  Company Number: US-MYLANLABS-2022M1030959

PATIENT
  Age: 12 Year
  Sex: Female

DRUGS (2)
  1. MIDODRINE [Suspect]
     Active Substance: MIDODRINE
     Indication: Product used for unknown indication
     Dosage: 10 MILLIGRAM, TID(THREE TIMES DAILY)
     Route: 048
  2. MIDODRINE [Suspect]
     Active Substance: MIDODRINE
     Indication: Postural orthostatic tachycardia syndrome
     Dosage: 10 DOSAGE FORM (OVERDOSE)
     Route: 048

REACTIONS (6)
  - Suicide attempt [Recovered/Resolved]
  - Nausea [Recovered/Resolved]
  - Headache [Recovered/Resolved]
  - Intentional overdose [Recovered/Resolved]
  - Hypertensive emergency [Recovered/Resolved]
  - Generalised tonic-clonic seizure [Recovered/Resolved]
